FAERS Safety Report 20070512 (Version 1)
Quarter: 2021Q4

REPORT INFORMATION
  Report Type: Spontaneous
  Country: None (occurrence: US)
  Receive Date: 20211115
  Receipt Date: 20211115
  Transmission Date: 20220303
  Serious: No
  Sender: FDA-Public Use
  Company Number: US-Breckenridge Pharmaceutical, Inc.-2121880

PATIENT
  Age: 28 Year
  Sex: Female
  Weight: 52.273 kg

DRUGS (2)
  1. DULOXETINE [Suspect]
     Active Substance: DULOXETINE
     Indication: Depression
     Route: 048
  2. CARAFATE [Concomitant]
     Active Substance: SUCRALFATE

REACTIONS (7)
  - Weaning failure [Unknown]
  - Antidepressant discontinuation syndrome [Unknown]
  - Anticipatory anxiety [Unknown]
  - Fall [Unknown]
  - Facial paralysis [Unknown]
  - Electric shock sensation [Unknown]
  - Muscle spasms [Unknown]
